FAERS Safety Report 14222127 (Version 1)
Quarter: 2017Q4

REPORT INFORMATION
  Report Type: Spontaneous
  Country: IT (occurrence: IT)
  Receive Date: 20171124
  Receipt Date: 20171124
  Transmission Date: 20180321
  Serious: Yes (Other)
  Sender: FDA-Public Use
  Company Number: IT-AMGEN-ITASP2017175302

PATIENT
  Age: 78 Year
  Sex: Female

DRUGS (1)
  1. XGEVA [Suspect]
     Active Substance: DENOSUMAB
     Indication: METASTASES TO BONE
     Dosage: 120 MG, QMO
     Route: 058
     Dates: start: 20160928, end: 20170607

REACTIONS (2)
  - Osteonecrosis of jaw [Not Recovered/Not Resolved]
  - Bone marrow oedema [Not Recovered/Not Resolved]

NARRATIVE: CASE EVENT DATE: 20170616
